FAERS Safety Report 12233288 (Version 5)
Quarter: 2020Q1

REPORT INFORMATION
  Report Type: Report from Study
  Country: DE (occurrence: DE)
  Receive Date: 20160404
  Receipt Date: 20200206
  Transmission Date: 20200409
  Serious: Yes (Death)
  Sender: FDA-Public Use
  Company Number: DE-ROCHE-1730156

PATIENT
  Age: 49 Year
  Sex: Female
  Weight: 74 kg

DRUGS (3)
  1. PACLITAXEL. [Suspect]
     Active Substance: PACLITAXEL
     Indication: BREAST CANCER
     Route: 042
     Dates: start: 20150623, end: 20150623
  2. TARGIN [Concomitant]
     Active Substance: NALOXONE HYDROCHLORIDE\OXYCODONE HYDROCHLORIDE
     Indication: PAIN
     Route: 048
  3. BEVACIZUMAB. [Suspect]
     Active Substance: BEVACIZUMAB
     Indication: BREAST CANCER
     Route: 042
     Dates: start: 20150623, end: 20150623

REACTIONS (2)
  - Pulmonary embolism [Fatal]
  - Venous thrombosis limb [Fatal]

NARRATIVE: CASE EVENT DATE: 20150630
